FAERS Safety Report 7550948-4 (Version None)
Quarter: 2011Q2

REPORT INFORMATION
  Report Type: 
  Country: None (occurrence: None)
  Receive Date: 20110609
  Receipt Date: 20110526
  Transmission Date: 20111010
  Serious: Yes (Hospitalization)
  Sender: FDA-Public Use
  Company Number: TPA2011A02709

PATIENT
  Age: 54 Year
  Sex: Male
  Weight: 127.9144 kg

DRUGS (3)
  1. SIMVASTATIN [Concomitant]
  2. GLYBURIDE [Concomitant]
  3. ACTOPLUS MET [Suspect]
     Indication: DIABETES MELLITUS
     Dates: start: 20110201

REACTIONS (1)
  - MYOCARDIAL INFARCTION [None]
